FAERS Safety Report 9961317 (Version 1)
Quarter: 2014Q1

REPORT INFORMATION
  Report Type: Spontaneous
  Country: SE (occurrence: SE)
  Receive Date: 20140305
  Receipt Date: 20140305
  Transmission Date: 20141002
  Serious: Yes (Other)
  Sender: FDA-Public Use
  Company Number: SE-AMGEN-SWESP2014014250

PATIENT
  Age: 41 Year
  Sex: Female

DRUGS (2)
  1. VECTIBIX [Suspect]
     Indication: COLORECTAL CANCER
     Dosage: 390 MG, EVERY OTHER WEEK
     Route: 042
     Dates: start: 20131120, end: 20140205
  2. CAMPTO [Concomitant]
     Indication: COLORECTAL CANCER
     Dosage: UNK

REACTIONS (6)
  - Oropharyngeal blistering [Recovering/Resolving]
  - Dermatitis infected [Recovering/Resolving]
  - Disease progression [Unknown]
  - Pruritus [Recovering/Resolving]
  - Pain of skin [Recovering/Resolving]
  - Dry skin [Recovering/Resolving]
